FAERS Safety Report 9104218 (Version 2)
Quarter: 2013Q1

REPORT INFORMATION
  Report Type: Not Available
  Country: FR (occurrence: FR)
  Receive Date: 20130219
  Receipt Date: 20130222
  Transmission Date: 20140127
  Serious: Yes (Hospitalization)
  Sender: FDA-Public Use
  Company Number: FR-NAPPMUNDI-GBR-2013-0013144

PATIENT
  Age: 84 None
  Sex: Female

DRUGS (18)
  1. OXYCONTIN LP, COMPRIME PELLICULE A LIBERATION PROLONGEE [Suspect]
     Indication: PAIN
     Dosage: 5 MG, BID
     Route: 048
     Dates: start: 20130113
  2. OXYCONTIN LP, COMPRIME PELLICULE A LIBERATION PROLONGEE [Suspect]
     Dosage: 10 MG, BID
     Route: 048
     Dates: start: 20130111, end: 20130112
  3. OXYCONTIN LP, COMPRIME PELLICULE A LIBERATION PROLONGEE [Suspect]
     Dosage: 5 MG, TID
     Route: 048
     Dates: start: 20130107, end: 20130110
  4. OXYCONTIN LP, COMPRIME PELLICULE A LIBERATION PROLONGEE [Suspect]
     Dosage: 20 MG, BID
     Route: 048
  5. OXYNORM, GELULE [Suspect]
     Indication: PAIN
     Dosage: 10 MG, QID
     Route: 048
     Dates: start: 20130111, end: 20130113
  6. OXYNORM, GELULE [Suspect]
     Dosage: 5 MG, PRN
     Route: 048
  7. LAROXYL [Suspect]
     Indication: PAIN
     Dosage: 25 MG, UNK
     Route: 048
     Dates: start: 20130109, end: 20130111
  8. LYRICA [Suspect]
     Indication: NEURALGIA
     Dosage: 100-100-100
     Route: 048
     Dates: start: 20130107, end: 20130111
  9. LYRICA [Suspect]
     Dosage: 50-50-50
     Route: 048
     Dates: start: 20130106
  10. LYRICA [Suspect]
     Dosage: 50-0-50
     Route: 048
     Dates: start: 20130103, end: 20130106
  11. SIMVASTATINE [Suspect]
     Indication: PRODUCT USED FOR UNKNOWN INDICATION
     Dosage: UNK
     Route: 048
     Dates: end: 20130110
  12. DOLIPRANE [Suspect]
     Indication: PRODUCT USED FOR UNKNOWN INDICATION
     Dosage: UNK
     Route: 048
     Dates: end: 20130110
  13. VERSATIS [Suspect]
     Dosage: UNK UNK, BID
     Route: 065
     Dates: start: 20130107
  14. CIPRALAN [Concomitant]
     Dosage: 0.5 TABLET, BID
     Route: 048
  15. LUMIRELAX                          /01313101/ [Concomitant]
     Dosage: 1 TABLET, DAILY
     Route: 048
  16. MOTILIUM                           /00498201/ [Concomitant]
     Dosage: UNK
     Dates: start: 20130113, end: 20130115
  17. PRIMPERAN [Concomitant]
     Dosage: UNK
     Dates: end: 20130115
  18. RIVOTRIL [Concomitant]
     Dosage: 3 DROP, PM
     Dates: start: 20130115

REACTIONS (5)
  - Cell death [Recovered/Resolved]
  - Cholestasis [Recovered/Resolved]
  - Nausea [Recovered/Resolved]
  - Vomiting [Recovered/Resolved]
  - Anxiety [Recovered/Resolved]
